FAERS Safety Report 18134675 (Version 1)
Quarter: 2020Q3

REPORT INFORMATION
  Report Type: Spontaneous
  Country: US (occurrence: US)
  Receive Date: 20200810
  Receipt Date: 20200810
  Transmission Date: 20201103
  Serious: Yes (Other)
  Sender: FDA-Public Use
  Company Number: None

PATIENT
  Age: 70 Year
  Sex: Female
  Weight: 74 kg

DRUGS (22)
  1. NOREPINEPHRINE. [Concomitant]
     Active Substance: NOREPINEPHRINE
     Dates: start: 20200809
  2. RANOLAZINE. [Concomitant]
     Active Substance: RANOLAZINE
     Dates: start: 20200805
  3. ASPIRIN. [Concomitant]
     Active Substance: ASPIRIN
     Dates: start: 20200804
  4. CILOSTAZOL. [Concomitant]
     Active Substance: CILOSTAZOL
     Dates: start: 20200805
  5. ROCURONIUM [Concomitant]
     Active Substance: ROCURONIUM BROMIDE
     Dates: start: 20200809
  6. FESOTERODINE [Concomitant]
     Active Substance: FESOTERODINE
     Dates: start: 20200807, end: 20200810
  7. ISOSORBIDE. [Concomitant]
     Active Substance: ISOSORBIDE
     Dates: start: 20200805
  8. CLOPIDOGREL [Concomitant]
     Active Substance: CLOPIDOGREL BISULFATE
     Dates: start: 20200806
  9. HEPARIN [Concomitant]
     Active Substance: HEPARIN SODIUM
     Dates: start: 20200810
  10. OMEPRAZOLE. [Concomitant]
     Active Substance: OMEPRAZOLE
     Dates: start: 20200805, end: 20200809
  11. INSULIN [Concomitant]
     Active Substance: INSULIN NOS
     Dates: start: 20200804
  12. FENTANYL. [Concomitant]
     Active Substance: FENTANYL
     Dates: start: 20200810
  13. SUCRALFATE. [Concomitant]
     Active Substance: SUCRALFATE
     Dates: start: 20200805, end: 20200809
  14. ATORVASTATIN [Concomitant]
     Active Substance: ATORVASTATIN
     Dates: start: 20200805
  15. REMDESIVIR. [Suspect]
     Active Substance: REMDESIVIR
     Indication: COVID-19
     Dosage: ?          OTHER FREQUENCY:ONCE;?
     Route: 042
     Dates: start: 20200809, end: 20200810
  16. HYDROCODONE?ACETAMINOPHEN [Concomitant]
     Active Substance: ACETAMINOPHEN\HYDROCODONE
     Dates: start: 20200806
  17. ENOXAPARIN [Concomitant]
     Active Substance: ENOXAPARIN
     Dates: start: 20200804, end: 20200809
  18. METOPROLOL. [Concomitant]
     Active Substance: METOPROLOL
     Dates: start: 20200805, end: 20200806
  19. DEXAMETHASONE. [Concomitant]
     Active Substance: DEXAMETHASONE
     Dates: start: 20200805
  20. FUROSEMIDE. [Concomitant]
     Active Substance: FUROSEMIDE
     Dates: start: 20200808
  21. VITAMIN C [Concomitant]
     Active Substance: ASCORBIC ACID
     Dates: start: 20200805
  22. MAG?OX [Concomitant]
     Active Substance: MAGNESIUM OXIDE
     Dates: start: 20200807

REACTIONS (2)
  - Therapy interrupted [None]
  - Alanine aminotransferase increased [None]

NARRATIVE: CASE EVENT DATE: 20200810
